FAERS Safety Report 4359771-5 (Version None)
Quarter: 2004Q2

REPORT INFORMATION
  Report Type: 
  Country: None (occurrence: None)
  Receive Date: 20040518
  Receipt Date: 20031126
  Transmission Date: 20050107
  Serious: Yes (Hospitalization, Other)
  Sender: FDA-Public Use
  Company Number: US-GLAXOSMITHKLINE-A0441731A

PATIENT
  Age: 37 Year
  Sex: Female

DRUGS (4)
  1. COMBIVIR [Suspect]
     Indication: HIV INFECTION
     Route: 048
     Dates: start: 20031029
  2. CRIXIVAN [Concomitant]
     Indication: HIV INFECTION
     Dosage: 1600MG PER DAY
     Route: 048
     Dates: start: 20031029, end: 20031117
  3. NORVIR [Concomitant]
     Indication: HIV INFECTION
     Dosage: 200MG PER DAY
     Route: 048
     Dates: start: 20031029
  4. ATAZANAVIR [Concomitant]
     Indication: HIV INFECTION
     Dosage: 400MG PER DAY
     Route: 048
     Dates: start: 20031125

REACTIONS (3)
  - CYSTITIS HAEMORRHAGIC [None]
  - DRUG EXPOSURE DURING PREGNANCY [None]
  - NEPHROLITHIASIS [None]
